FAERS Safety Report 5331158-8 (Version None)
Quarter: 2007Q2

REPORT INFORMATION
  Report Type: 
  Country: None (occurrence: None)
  Receive Date: 20070522
  Receipt Date: 20070515
  Transmission Date: 20071010
  Serious: Yes (Other)
  Sender: FDA-Public Use
  Company Number: CAWYE665216MAY07

PATIENT
  Sex: Female

DRUGS (6)
  1. EFFEXOR XR [Suspect]
     Dosage: 75 MG OD
     Route: 048
     Dates: start: 20070205
  2. MORPHINE [Concomitant]
     Indication: PAIN
     Dosage: UNKNOWN
     Dates: end: 20070201
  3. BACLOFEN [Concomitant]
     Indication: MULTIPLE SCLEROSIS
  4. NAPROXEN [Concomitant]
     Dosage: UNKNOWN
     Dates: end: 20070201
  5. NEURONTIN [Concomitant]
     Indication: MULTIPLE SCLEROSIS
     Dosage: UNKNOWN DOSE
     Dates: start: 20060101
  6. AVONEX [Concomitant]
     Indication: MULTIPLE SCLEROSIS
     Dosage: UNKNOWN
     Dates: start: 20070115

REACTIONS (2)
  - ECZEMA [None]
  - HEPATITIS TOXIC [None]
